FAERS Safety Report 12595336 (Version 1)
Quarter: 2016Q3

REPORT INFORMATION
  Report Type: Spontaneous
  Country: US (occurrence: US)
  Receive Date: 20160726
  Receipt Date: 20160726
  Transmission Date: 20161109
  Serious: Yes (Other)
  Sender: FDA-Public Use
  Company Number: ALCN2016US005145

PATIENT
  Age: 60 Year
  Sex: Female
  Weight: 63 kg

DRUGS (6)
  1. PRED FORTE [Concomitant]
     Active Substance: PREDNISOLONE ACETATE
     Indication: POSTOPERATIVE CARE
     Dosage: UNK GTT, UNK
     Route: 047
     Dates: start: 20160609, end: 20160701
  2. PROLENSA [Concomitant]
     Active Substance: BROMFENAC SODIUM
     Indication: POSTOPERATIVE CARE
     Dosage: UNK GTT, UNK
     Route: 047
     Dates: start: 20160609, end: 20160701
  3. BSS [Suspect]
     Active Substance: CALCIUM CHLORIDE\MAGNESIUM CHLORIDE\POTASSIUM CHLORIDE\SODIUM ACETATE\SODIUM CHLORIDE\SODIUM CITRATE
     Indication: IRRIGATION THERAPY
     Dosage: UNK
     Route: 065
     Dates: start: 20160609, end: 20160609
  4. BETADINE [Suspect]
     Active Substance: POVIDONE-IODINE
     Indication: PREOPERATIVE CARE
     Dosage: UNK
     Route: 047
     Dates: start: 20160609, end: 20160609
  5. OFLOXACIN. [Suspect]
     Active Substance: OFLOXACIN
     Indication: PREOPERATIVE CARE
     Dosage: UNK GTT, UNK
     Route: 047
  6. OFLOXACIN. [Concomitant]
     Active Substance: OFLOXACIN
     Indication: POSTOPERATIVE CARE
     Dosage: UNK GTT, UNK
     Route: 047
     Dates: start: 20160609, end: 20160701

REACTIONS (4)
  - Iris bombe [Recovered/Resolved]
  - Corneal abscess [Recovered/Resolved]
  - Hypopyon [Recovered/Resolved]
  - Endophthalmitis [Recovered/Resolved]

NARRATIVE: CASE EVENT DATE: 20160613
